FAERS Safety Report 8766329 (Version 3)
Quarter: 2013Q3

REPORT INFORMATION
  Report Type: Spontaneous
  Country: US (occurrence: US)
  Receive Date: 20120904
  Receipt Date: 20130927
  Transmission Date: 20140515
  Serious: Yes (Hospitalization)
  Sender: FDA-Public Use
  Company Number: US-009507513-1208USA012638

PATIENT
  Sex: Female
  Weight: 77.98 kg

DRUGS (2)
  1. NUVARING [Suspect]
     Indication: CONTRACEPTION
     Dosage: UNK
     Route: 067
     Dates: start: 200808, end: 200905
  2. IRON (UNSPECIFIED) [Concomitant]
     Dosage: UNK
     Dates: start: 2003

REACTIONS (13)
  - Haemorrhagic anaemia [Not Recovered/Not Resolved]
  - Thrombosis [Not Recovered/Not Resolved]
  - Metrorrhagia [Not Recovered/Not Resolved]
  - Dizziness [Unknown]
  - Depression [Unknown]
  - Anxiety [Unknown]
  - Ovarian cyst [Not Recovered/Not Resolved]
  - Maternal exposure before pregnancy [Unknown]
  - Pain [Recovering/Resolving]
  - Vaginal haemorrhage [Recovering/Resolving]
  - Nausea [Recovering/Resolving]
  - Headache [Recovering/Resolving]
  - Abdominal pain [Recovered/Resolved]
